FAERS Safety Report 4605789-4 (Version None)
Quarter: 2005Q1

REPORT INFORMATION
  Report Type: 
  Country: None (occurrence: None)
  Receive Date: 20050115
  Receipt Date: 20040211
  Transmission Date: 20050727
  Serious: Yes (Hospitalization)
  Sender: FDA-Public Use
  Company Number: A03200400424

PATIENT
  Age: 75 Year
  Sex: Male
  Weight: 95.2554 kg

DRUGS (7)
  1. AMBIEN [Suspect]
     Indication: INSOMNIA
     Dosage: 10 MG QD - ORAL
     Route: 048
     Dates: start: 20040108, end: 20040109
  2. FUROSEMIDE [Concomitant]
  3. ISOSORBIDE [Concomitant]
  4. ATORVASTATIN CALCIUM [Concomitant]
  5. INSULIN [Concomitant]
  6. INSULIN GLARGINE [Concomitant]
  7. RAMIPRIL [Concomitant]

REACTIONS (6)
  - ASTHENIA [None]
  - BALANCE DISORDER [None]
  - CONFUSIONAL STATE [None]
  - DIZZINESS [None]
  - FALL [None]
  - HYPERHIDROSIS [None]
